FAERS Safety Report 4390188-3 (Version None)
Quarter: 2004Q2

REPORT INFORMATION
  Report Type: 
  Country: None (occurrence: None)
  Receive Date: 20040630
  Receipt Date: 20040615
  Transmission Date: 20050107
  Serious: Yes (Life-Threatening, Other)
  Sender: FDA-Public Use
  Company Number: GB-JNJFOC-20040601205

PATIENT
  Sex: Female
  Weight: 2.7 kg

DRUGS (1)
  1. MICONAZOLE [Suspect]
     Indication: ORAL CANDIDIASIS
     Dosage: 2.5 ML, 3 IN 1 DAY, ORAL
     Route: 048
     Dates: start: 20040603, end: 20040603

REACTIONS (6)
  - DYSPNOEA [None]
  - FOREIGN BODY TRAUMA [None]
  - MEDICATION ERROR [None]
  - NASAL CONGESTION [None]
  - OVERDOSE [None]
  - WHEEZING [None]
